FAERS Safety Report 14427991 (Version 1)
Quarter: 2018Q1

REPORT INFORMATION
  Report Type: Spontaneous
  Country: US (occurrence: US)
  Receive Date: 20180123
  Receipt Date: 20180123
  Transmission Date: 20180509
  Serious: No
  Sender: FDA-Public Use
  Company Number: None

PATIENT
  Age: 49 Year
  Sex: Female

DRUGS (1)
  1. AMPYRA [Suspect]
     Active Substance: DALFAMPRIDINE
     Indication: MULTIPLE SCLEROSIS
     Route: 048
     Dates: start: 20100611

REACTIONS (3)
  - Blood immunoglobulin M decreased [None]
  - Lymphocyte percentage decreased [None]
  - Blood immunoglobulin G decreased [None]

NARRATIVE: CASE EVENT DATE: 20180119
